FAERS Safety Report 9675924 (Version 1)
Quarter: 2013Q4

REPORT INFORMATION
  Report Type: Spontaneous
  Country: US (occurrence: None)
  Receive Date: 20131105
  Receipt Date: 20131105
  Transmission Date: 20140711
  Serious: Yes (Hospitalization)
  Sender: FDA-Public Use
  Company Number: 151972

PATIENT
  Age: 66 Year
  Sex: Male
  Weight: 105.69 kg

DRUGS (8)
  1. ETOPOSIDE [Suspect]
     Indication: CHRONIC LYMPHOCYTIC LEUKAEMIA
     Dosage: 50MG/M2 IV DAILY
     Route: 042
     Dates: start: 20130429, end: 20130502
  2. ADRIAMYCIN (DOXORUBICIN) INJ. USP 10MG/5ML [Suspect]
     Indication: CHRONIC LYMPHOCYTIC LEUKAEMIA
     Dosage: 10MG/M2 IV DAILY
     Route: 042
     Dates: start: 20130429, end: 20130502
  3. RITUXAN [Concomitant]
  4. FLUDARABINE [Concomitant]
  5. VINCRISTINE [Concomitant]
  6. DOXORUBICIN [Concomitant]
  7. PREDISONE [Concomitant]
  8. CYCLOPHOSPHAMIDE [Concomitant]

REACTIONS (1)
  - Subdural haematoma [None]
